FAERS Safety Report 24664951 (Version 1)
Quarter: 2024Q4

REPORT INFORMATION
  Report Type: Spontaneous
  Country: US (occurrence: US)
  Receive Date: 20241126
  Receipt Date: 20241126
  Transmission Date: 20250114
  Serious: Yes (Hospitalization, Other)
  Sender: GILEAD
  Company Number: US-GILEAD-2024-0694931

PATIENT
  Age: 66 Year
  Sex: Male

DRUGS (1)
  1. TECARTUS [Suspect]
     Active Substance: BREXUCABTAGENE AUTOLEUCEL
     Indication: Mantle cell lymphoma
     Route: 065

REACTIONS (4)
  - Inappropriate antidiuretic hormone secretion [Unknown]
  - Hypovolaemia [Unknown]
  - Hyponatraemia [Recovering/Resolving]
  - Cytokine release syndrome [Unknown]
